FAERS Safety Report 7968326-2 (Version None)
Quarter: 2011Q4

REPORT INFORMATION
  Report Type: 
  Country: None (occurrence: None)
  Receive Date: 20111209
  Receipt Date: 20111128
  Transmission Date: 20120403
  Serious: Yes (Life-Threatening, Hospitalization)
  Sender: FDA-Public Use
  Company Number: GB-CELGENEUS-167-21880-11113896

PATIENT
  Age: 54 Year
  Sex: Female

DRUGS (4)
  1. DEXAMETHASONE [Suspect]
     Dosage: 20 MILLIGRAM
     Route: 048
  2. CYCLOPHOSPHAMIDE [Suspect]
     Indication: MULTIPLE MYELOMA
     Dosage: 500 MILLIGRAM
     Route: 048
     Dates: start: 20111104, end: 20111124
  3. DEXAMETHASONE [Suspect]
     Indication: MULTIPLE MYELOMA
     Dosage: 40 MILLIGRAM
     Route: 048
     Dates: start: 20111104, end: 20111115
  4. REVLIMID [Suspect]
     Indication: MULTIPLE MYELOMA
     Dosage: 25 MILLIGRAM
     Route: 048
     Dates: start: 20111104

REACTIONS (1)
  - HYPONATRAEMIA [None]
